FAERS Safety Report 5404264-7 (Version None)
Quarter: 2007Q3

REPORT INFORMATION
  Report Type: 
  Country: None (occurrence: None)
  Receive Date: 20070731
  Receipt Date: 20070716
  Transmission Date: 20080115
  Serious: Yes (Hospitalization)
  Sender: FDA-Public Use
  Company Number: 2007001305

PATIENT
  Age: 61 Year
  Sex: Male

DRUGS (6)
  1. TARCEVA [Suspect]
     Indication: PANCREATIC CARCINOMA
     Dosage: 100 MG (QD), ORAL
     Route: 048
     Dates: start: 20070626, end: 20070712
  2. GEMZAR [Concomitant]
  3. BENADRYL [Concomitant]
  4. DECADRON [Concomitant]
  5. REGLAN [Concomitant]
  6. PAIN MEDICATIONS [Concomitant]

REACTIONS (1)
  - PULMONARY EMBOLISM [None]
